FAERS Safety Report 7658341-0 (Version None)
Quarter: 2011Q3

REPORT INFORMATION
  Report Type: 
  Country: None (occurrence: None)
  Receive Date: 20110804
  Receipt Date: 20110804
  Transmission Date: 20111222
  Serious: Yes (Hospitalization, Other)
  Sender: FDA-Public Use
  Company Number: None

PATIENT
  Age: 57 Year
  Sex: Female
  Weight: 84.1 kg

DRUGS (1)
  1. PREDNISONE [Suspect]
     Indication: DERMATITIS CONTACT
     Dosage: 10 MG 4X3, 3X3, 2X3, 1X3 ORAL
     Route: 048
     Dates: start: 20110610, end: 20110620

REACTIONS (3)
  - MUSCLE SPASMS [None]
  - ILEUS PARALYTIC [None]
  - HEART RATE INCREASED [None]
